FAERS Safety Report 23612743 (Version 1)
Quarter: 2024Q1

REPORT INFORMATION
  Report Type: Spontaneous
  Country: US (occurrence: US)
  Receive Date: 20240308
  Receipt Date: 20240308
  Transmission Date: 20240410
  Serious: No
  Sender: FDA-Public Use
  Company Number: US-PFIZER INC-PV202400032614

PATIENT
  Age: 47 Year
  Sex: Male

DRUGS (1)
  1. CIBINQO [Suspect]
     Active Substance: ABROCITINIB
     Dosage: TWO OF THE 100MG
     Dates: end: 202312

REACTIONS (1)
  - Illness [Unknown]

NARRATIVE: CASE EVENT DATE: 20231201
